FAERS Safety Report 21866220 (Version 1)
Quarter: 2023Q1

REPORT INFORMATION
  Report Type: Report from Study
  Country: EG (occurrence: EG)
  Receive Date: 20230116
  Receipt Date: 20230116
  Transmission Date: 20230418
  Serious: Yes (Other)
  Sender: FDA-Public Use
  Company Number: EG-002147023-NVSC2023EG008781

PATIENT
  Sex: Male

DRUGS (2)
  1. GILENYA [Suspect]
     Active Substance: FINGOLIMOD HYDROCHLORIDE
     Indication: Multiple sclerosis
     Dosage: 0.5 MG, QD
     Route: 048
     Dates: start: 2020
  2. VITAMIN B [Concomitant]
     Active Substance: VITAMIN B
     Indication: Vitamin supplementation
     Dosage: QD (IRREGULAR)
     Route: 048

REACTIONS (6)
  - Movement disorder [Recovering/Resolving]
  - Gait disturbance [Recovering/Resolving]
  - Condition aggravated [Not Recovered/Not Resolved]
  - Fall [Recovering/Resolving]
  - Scratch [Recovering/Resolving]
  - Drug ineffective [Unknown]

NARRATIVE: CASE EVENT DATE: 20200101
